FAERS Safety Report 14311499 (Version 1)
Quarter: 2017Q4

REPORT INFORMATION
  Report Type: Report from Study
  Country: CO (occurrence: CO)
  Receive Date: 20171221
  Receipt Date: 20171221
  Transmission Date: 20180321
  Serious: Yes (Hospitalization)
  Sender: FDA-Public Use
  Company Number: CO-ROCHE-2041406

PATIENT
  Sex: Male
  Weight: 40 kg

DRUGS (2)
  1. XOLAIR [Suspect]
     Active Substance: OMALIZUMAB
     Indication: ASTHMA
     Route: 058
     Dates: start: 20170301
  2. XOLAIR [Suspect]
     Active Substance: OMALIZUMAB
     Route: 058
     Dates: start: 20171023

REACTIONS (7)
  - Headache [Unknown]
  - Viral infection [Recovered/Resolved]
  - Pyrexia [Unknown]
  - Muscular weakness [Unknown]
  - Dizziness [Unknown]
  - Nystagmus [Unknown]
  - Asthenia [Unknown]
